FAERS Safety Report 7426146-1 (Version None)
Quarter: 2011Q2

REPORT INFORMATION
  Report Type: 
  Country: None (occurrence: None)
  Receive Date: 20110420
  Receipt Date: 20110411
  Transmission Date: 20111010
  Serious: Yes (Other)
  Sender: FDA-Public Use
  Company Number: PHHY2011JP12909

PATIENT
  Sex: Male

DRUGS (12)
  1. AFINITOR [Suspect]
     Dosage: 10 MG, DAILY
     Route: 048
     Dates: start: 20100810, end: 20100823
  2. AMLODIN [Concomitant]
     Dosage: 5 MG, UNK
     Route: 048
     Dates: start: 20070101
  3. AFINITOR [Suspect]
     Dosage: 5 MG, DAILY
     Route: 048
     Dates: start: 20100611, end: 20100809
  4. GLYBURIDE [Concomitant]
     Dosage: 0.25 MG, UNK
     Route: 048
     Dates: start: 20070101
  5. AFINITOR [Suspect]
     Dosage: 5 MG, DAILY
     Route: 048
     Dates: start: 20101221, end: 20110107
  6. LASIX [Suspect]
     Dosage: 40 MG, UNK
     Route: 048
  7. AFINITOR [Suspect]
     Indication: METASTATIC RENAL CELL CARCINOMA
     Dosage: 10 MG, DAILY
     Route: 048
     Dates: start: 20100519, end: 20100604
  8. MYSLEE [Concomitant]
     Dosage: 5 MG, UNK
     Route: 048
     Dates: start: 20080101
  9. AFINITOR [Suspect]
     Dosage: 5 MG, DAILY
     Route: 048
     Dates: start: 20100824, end: 20100906
  10. DEPAS [Concomitant]
     Dosage: 0.5 MG, UNK
     Route: 048
     Dates: start: 20080101
  11. AFINITOR [Suspect]
     Dosage: 10 MG, DAILY
     Route: 048
     Dates: start: 20100907, end: 20101011
  12. AFINITOR [Suspect]
     Dosage: 10 MG, DAILY
     Route: 048
     Dates: start: 20101111, end: 20101220

REACTIONS (2)
  - MALAISE [None]
  - HAEMOGLOBIN DECREASED [None]
